FAERS Safety Report 7283073-0 (Version None)
Quarter: 2010Q4

REPORT INFORMATION
  Report Type: 
  Country: None (occurrence: None)
  Receive Date: 20101221
  Receipt Date: 20100728
  Transmission Date: 20110411
  Serious: Yes (Hospitalization, Disabling)
  Sender: FDA-Public Use
  Company Number: WAES 1007USA03827

PATIENT
  Age: 47 Year
  Sex: Female
  Weight: 151.0478 kg

DRUGS (17)
  1. JANUVIA [Suspect]
     Indication: TYPE 2 DIABETES MELLITUS
     Dosage: 100 MG/DAILY/PO
     Route: 048
     Dates: start: 20070516, end: 20100711
  2. CELEBREX [Suspect]
     Indication: ARTHRITIS
     Dates: end: 20100711
  3. CELEBREX [Suspect]
     Indication: INTERVERTEBRAL DISC DEGENERATION
     Dates: end: 20100711
  4. IBUPROFEN [Suspect]
     Indication: ARTHRITIS
     Dosage: 800 MG/DAILY
     Dates: start: 20040711, end: 20100711
  5. IBUPROFEN [Suspect]
     Indication: INTERVERTEBRAL DISC DEGENERATION
     Dosage: 800 MG/DAILY
     Dates: start: 20040711, end: 20100711
  6. ALEVE [Suspect]
     Indication: ARTHRITIS
     Dates: end: 20100711
  7. ALEVE [Suspect]
     Indication: INTERVERTEBRAL DISC DEGENERATION
     Dates: end: 20100711
  8. ADVAIR [Concomitant]
  9. BENICAR [Concomitant]
  10. CLIMARA [Concomitant]
  11. DARVOCET-N 100 [Concomitant]
  12. GAVISCON ANTACID TABLETS [Concomitant]
  13. LORTAB [Concomitant]
  14. LUNESTA [Concomitant]
  15. PNEUMOVAX 23 [Concomitant]
  16. SINGULAIR [Concomitant]
  17. SKELAXIN [Concomitant]

REACTIONS (1)
  - PANCREATITIS ACUTE [None]
